FAERS Safety Report 9068656 (Version 1)
Quarter: 2013Q1

REPORT INFORMATION
  Report Type: Spontaneous
  Country: US (occurrence: None)
  Receive Date: 20130212
  Receipt Date: 20130212
  Transmission Date: 20140127
  Serious: Yes (Other)
  Sender: FDA-Public Use
  Company Number: None

PATIENT
  Age: 77 Year
  Sex: Male
  Weight: 86.18 kg

DRUGS (1)
  1. CARBIDOPA-LEVODOPA [Suspect]
     Dosage: 1 TABLET 3 TIMES PER DAY PO
     Route: 048
     Dates: start: 20130129, end: 20130207

REACTIONS (1)
  - Headache [None]
